FAERS Safety Report 21549679 (Version 1)
Quarter: 2022Q4

REPORT INFORMATION
  Report Type: Spontaneous
  Country: US (occurrence: US)
  Receive Date: 20221103
  Receipt Date: 20221103
  Transmission Date: 20230113
  Serious: No
  Sender: FDA-Public Use
  Company Number: US-MYOVANT SCIENCES GMBH-2022MYSCI0900804

PATIENT
  Age: 57 Year
  Sex: Male

DRUGS (10)
  1. ORGOVYX [Suspect]
     Active Substance: RELUGOLIX
     Indication: Prostate cancer
     Dosage: 360 MILLIGRAM, ONE TIME DOSE
     Route: 048
     Dates: start: 20210421, end: 20210421
  2. ORGOVYX [Suspect]
     Active Substance: RELUGOLIX
     Dosage: 120 MILLIGRAM
     Route: 048
     Dates: start: 20210521
  3. PREDNISONE [Concomitant]
     Active Substance: PREDNISONE
     Indication: Adrenal suppression
     Dosage: 5 MILLIGRAM, QD
     Route: 065
     Dates: start: 20210415
  4. PREDNISONE [Concomitant]
     Active Substance: PREDNISONE
     Indication: Adverse drug reaction
  5. ABIRATERONE [Concomitant]
     Active Substance: ABIRATERONE
     Indication: Neoplasm malignant
     Dosage: 1000 MILLIGRAM, QD
     Route: 065
     Dates: start: 20210415
  6. ABIRATERONE [Concomitant]
     Active Substance: ABIRATERONE
     Indication: Chemotherapy
  7. MELATONIN [Concomitant]
     Active Substance: MELATONIN
     Indication: Sleep disorder
     Dosage: 1 UNK, QD
     Route: 065
     Dates: start: 20201013
  8. CREATINE MONOHYDRATE [Concomitant]
     Active Substance: CREATINE MONOHYDRATE
     Indication: Fatigue
     Dosage: 4 UNIT
     Route: 065
     Dates: start: 20210827
  9. CREATINE MONOHYDRATE [Concomitant]
     Active Substance: CREATINE MONOHYDRATE
     Indication: Muscle atrophy
  10. CREATINE MONOHYDRATE [Concomitant]
     Active Substance: CREATINE MONOHYDRATE
     Indication: Neoplasm malignant

REACTIONS (5)
  - Muscle atrophy [Unknown]
  - Fatigue [Unknown]
  - Ligament rupture [Recovered/Resolved]
  - Therapy interrupted [Unknown]
  - Inappropriate schedule of product administration [Recovered/Resolved]

NARRATIVE: CASE EVENT DATE: 20220301
